FAERS Safety Report 17192041 (Version 1)
Quarter: 2019Q4

REPORT INFORMATION
  Report Type: Report from Study
  Country: DE (occurrence: DE)
  Receive Date: 20191223
  Receipt Date: 20191223
  Transmission Date: 20200122
  Serious: Yes (Congenital Anomaly)
  Sender: FDA-Public Use
  Company Number: DE-TEVA-2019-DE-1156769

PATIENT
  Sex: Female

DRUGS (5)
  1. SALBUTAMOL [Suspect]
     Active Substance: ALBUTEROL
     Dosage: DURING THE SECOND TRIMESTER
     Route: 064
  2. BUDESONIDE. [Suspect]
     Active Substance: BUDESONIDE
     Dosage: DURING THE SECOND TRIMESTER
     Route: 064
  3. PARACETAMOL [Suspect]
     Active Substance: ACETAMINOPHEN
     Indication: PAIN
     Dosage: RECEIVED BETWEEN GESTATIONAL WEEKS 18 AND 21
     Route: 064
  4. ACICLOVIR [Suspect]
     Active Substance: ACYCLOVIR
     Dosage: DURING THE SECOND TRIMESTER
     Route: 064
  5. AMOXICILLIN. [Suspect]
     Active Substance: AMOXICILLIN
     Dosage: DURING THE SECOND TRIMESTER
     Route: 064

REACTIONS (4)
  - Patent ductus arteriosus [Unknown]
  - Atrial septal defect [Unknown]
  - Congenital tricuspid valve incompetence [Unknown]
  - Foetal exposure during pregnancy [Unknown]
